FAERS Safety Report 6379669-0 (Version None)
Quarter: 2009Q3

REPORT INFORMATION
  Report Type: 
  Country: None (occurrence: None)
  Receive Date: 20090928
  Receipt Date: 20090910
  Transmission Date: 20100115
  Serious: No
  Sender: FDA-Public Use
  Company Number: HK-ROCHE-650491

PATIENT
  Age: 40 Year
  Sex: Female
  Weight: 97 kg

DRUGS (6)
  1. TAMIFLU [Suspect]
     Route: 048
     Dates: start: 20090715, end: 20090721
  2. TAMIFLU [Suspect]
     Route: 048
     Dates: start: 20090722, end: 20090727
  3. CLOBAZAM [Concomitant]
     Route: 048
  4. DIAZEPAM [Concomitant]
     Indication: EPILEPSY
     Route: 048
  5. VALPROATE SODIUM [Concomitant]
     Indication: EPILEPSY
     Route: 048
  6. PHENYTOIN SODIUM [Concomitant]
     Indication: EPILEPSY
     Dosage: FREQUENCY REPORTED: NOCTE
     Route: 048

REACTIONS (1)
  - PATHOGEN RESISTANCE [None]
